FAERS Safety Report 10033772 (Version 1)
Quarter: 2014Q1

REPORT INFORMATION
  Report Type: Spontaneous
  Country: US (occurrence: US)
  Receive Date: 20140325
  Receipt Date: 20140325
  Transmission Date: 20141002
  Serious: No
  Sender: FDA-Public Use
  Company Number: US-BIOGENIDEC-2014BI024786

PATIENT
  Age: 58 Year
  Sex: Female

DRUGS (9)
  1. TECFIDERA [Suspect]
     Indication: MULTIPLE SCLEROSIS
     Route: 048
     Dates: start: 20140306
  2. FISH OIL [Concomitant]
  3. GABAPENTIN [Concomitant]
  4. LEVOXYL [Concomitant]
  5. NEURONTIN [Concomitant]
  6. TRIAMTERENE HCTZ [Concomitant]
  7. VITAMIN C [Concomitant]
  8. VITAMIN D [Concomitant]
  9. VITAMIN E COMPLETE [Concomitant]

REACTIONS (2)
  - Influenza like illness [Unknown]
  - Headache [Unknown]
